FAERS Safety Report 6618717-7 (Version None)
Quarter: 2010Q1

REPORT INFORMATION
  Report Type: 
  Country: None (occurrence: None)
  Receive Date: 20100308
  Receipt Date: 20100302
  Transmission Date: 20100710
  Serious: Yes (Life-Threatening, Hospitalization, Disabling, Congenital Anomaly)
  Sender: FDA-Public Use
  Company Number: JP-ASTRAZENECA-2009SE12509

PATIENT
  Sex: Male
  Weight: 4 kg

DRUGS (5)
  1. BLOPRESS [Suspect]
     Indication: DRUG USE FOR UNKNOWN INDICATION
     Route: 064
     Dates: end: 20090817
  2. LANSOPRAZOLE [Concomitant]
     Route: 064
  3. LORAZEPAM [Concomitant]
     Route: 064
  4. MIRTAZAPINE [Concomitant]
     Route: 064
  5. TRIAMCINOLONE [Concomitant]
     Route: 064

REACTIONS (10)
  - ATRIAL SEPTAL DEFECT [None]
  - CONGENITAL RENAL DISORDER [None]
  - HAND DEFORMITY [None]
  - HEARING IMPAIRED [None]
  - HEPATOMEGALY [None]
  - HYPOGLYCAEMIA NEONATAL [None]
  - HYPOTONIA NEONATAL [None]
  - MICROCEPHALY [None]
  - PULMONARY HYPOPLASIA [None]
  - PULMONARY VALVE STENOSIS [None]
